FAERS Safety Report 5464227-2 (Version None)
Quarter: 2007Q3

REPORT INFORMATION
  Report Type: 
  Country: None (occurrence: None)
  Receive Date: 20070921
  Receipt Date: 20070911
  Transmission Date: 20080115
  Serious: Yes (Hospitalization)
  Sender: FDA-Public Use
  Company Number: US-ELI_LILLY_AND_COMPANY-US200708005998

PATIENT
  Sex: Male

DRUGS (4)
  1. HUMALOG [Suspect]
  2. HUMULIN N [Suspect]
  3. LEVOTHYROXINE SODIUM [Concomitant]
  4. SERTRALINE [Concomitant]

REACTIONS (7)
  - BLINDNESS [None]
  - BLOOD GLUCOSE DECREASED [None]
  - BLOOD GLUCOSE INCREASED [None]
  - CRANIAL NERVE PARALYSIS [None]
  - DIPLOPIA [None]
  - DRUG INEFFECTIVE [None]
  - VISION BLURRED [None]
